FAERS Safety Report 19808584 (Version 1)
Quarter: 2021Q3

REPORT INFORMATION
  Report Type: Spontaneous
  Country: US (occurrence: US)
  Receive Date: 20210908
  Receipt Date: 20210908
  Transmission Date: 20211014
  Serious: Yes (Hospitalization, Other)
  Sender: FDA-Public Use
  Company Number: US-SLATE RUN PHARMACEUTICALS-21US000664

PATIENT

DRUGS (24)
  1. VANCOMYCIN HYDROCHLORIDE USP [Suspect]
     Active Substance: VANCOMYCIN HYDROCHLORIDE
     Indication: SKIN MASS
     Dosage: UNK
  2. PREDNISONE. [Concomitant]
     Active Substance: PREDNISONE
     Dosage: 20 MILLIGRAM, QD
     Route: 048
  3. CEFTRIAXONE. [Concomitant]
     Active Substance: CEFTRIAXONE
     Indication: CELLULITIS
  4. CEFTRIAXONE. [Concomitant]
     Active Substance: CEFTRIAXONE
     Indication: TENOSYNOVITIS
  5. VANCOMYCIN HYDROCHLORIDE USP [Suspect]
     Active Substance: VANCOMYCIN HYDROCHLORIDE
     Indication: SKIN ULCER
     Dosage: UNK
  6. AMPHOTERICIN B. [Suspect]
     Active Substance: AMPHOTERICIN B
     Indication: CRYPTOCOCCOSIS
  7. LINEZOLID. [Concomitant]
     Active Substance: LINEZOLID
     Indication: SKIN ULCER
  8. CEFTRIAXONE. [Concomitant]
     Active Substance: CEFTRIAXONE
     Indication: SKIN ULCER
     Dosage: UNK
  9. LINEZOLID. [Concomitant]
     Active Substance: LINEZOLID
     Indication: PRURITUS
  10. VANCOMYCIN HYDROCHLORIDE USP [Suspect]
     Active Substance: VANCOMYCIN HYDROCHLORIDE
     Indication: SKIN LESION
  11. VANCOMYCIN HYDROCHLORIDE USP [Suspect]
     Active Substance: VANCOMYCIN HYDROCHLORIDE
     Indication: TENOSYNOVITIS
  12. PREDNISONE. [Concomitant]
     Active Substance: PREDNISONE
     Indication: CUTANEOUS SARCOIDOSIS
     Dosage: UNK UNK, QD (TAPERED)
     Route: 048
  13. CANNABIS [Concomitant]
     Active Substance: CANNABIS SATIVA SUBSP. INDICA TOP
     Indication: PAIN
  14. CEFTRIAXONE. [Concomitant]
     Active Substance: CEFTRIAXONE
     Indication: SKIN LESION
  15. VANCOMYCIN HYDROCHLORIDE USP [Suspect]
     Active Substance: VANCOMYCIN HYDROCHLORIDE
     Indication: PRURITUS
  16. VANCOMYCIN HYDROCHLORIDE USP [Suspect]
     Active Substance: VANCOMYCIN HYDROCHLORIDE
     Indication: CELLULITIS
  17. AMPHOTERICIN B. [Suspect]
     Active Substance: AMPHOTERICIN B
     Indication: HISTOPLASMOSIS
     Dosage: 5 MILLIGRAM PER KILOGRAM, QD (INFUSION)
     Route: 042
  18. LINEZOLID. [Concomitant]
     Active Substance: LINEZOLID
     Indication: SKIN MASS
  19. AMPHOTERICIN B. [Suspect]
     Active Substance: AMPHOTERICIN B
     Indication: SPOROTRICHOSIS
     Dosage: UNK (INJECTIONS)
     Route: 031
  20. PREDNISONE. [Concomitant]
     Active Substance: PREDNISONE
     Dosage: 60 MILLIGRAM, QD
     Route: 048
  21. METHOTREXATE. [Concomitant]
     Active Substance: METHOTREXATE
     Indication: CUTANEOUS SARCOIDOSIS
     Dosage: UNK, TAPERED
  22. CEFTRIAXONE. [Concomitant]
     Active Substance: CEFTRIAXONE
     Indication: SKIN MASS
     Dosage: UNK
  23. LINEZOLID. [Concomitant]
     Active Substance: LINEZOLID
     Indication: SKIN LESION
  24. CEFTRIAXONE. [Concomitant]
     Active Substance: CEFTRIAXONE
     Indication: PRURITUS

REACTIONS (10)
  - Mycotic endophthalmitis [Recovered/Resolved]
  - Treatment failure [Unknown]
  - Cellulitis [Recovering/Resolving]
  - Rash [Recovering/Resolving]
  - Disseminated sporotrichosis [Recovering/Resolving]
  - Cataract [Recovered/Resolved]
  - Acute kidney injury [Unknown]
  - Iridocyclitis [Recovered/Resolved]
  - Tenosynovitis [Recovering/Resolving]
  - Fungaemia [Recovering/Resolving]
